FAERS Safety Report 8498976-9 (Version None)
Quarter: 2012Q3

REPORT INFORMATION
  Report Type: 
  Country: None (occurrence: None)
  Receive Date: 20120710
  Receipt Date: 20120703
  Transmission Date: 20120928
  Serious: No
  Sender: FDA-Public Use
  Company Number: US-BIOGENIDEC-2012BI023568

PATIENT
  Age: 62 Year
  Sex: Female

DRUGS (3)
  1. AVONEX [Concomitant]
     Indication: MULTIPLE SCLEROSIS
     Route: 030
  2. TYSABRI [Suspect]
     Indication: MULTIPLE SCLEROSIS
     Route: 042
     Dates: start: 20120618
  3. AVONEX [Concomitant]
     Route: 030
     Dates: start: 19960701

REACTIONS (4)
  - GASTRIC DISORDER [None]
  - VERTIGO [None]
  - SYNCOPE [None]
  - FATIGUE [None]
